FAERS Safety Report 20036938 (Version 6)
Quarter: 2023Q1

REPORT INFORMATION
  Report Type: Report from Study
  Country: GB (occurrence: GB)
  Receive Date: 20211105
  Receipt Date: 20230202
  Transmission Date: 20230417
  Serious: Yes (Hospitalization)
  Sender: FDA-Public Use
  Company Number: GB-GLAXOSMITHKLINE-GB2021226640

PATIENT

DRUGS (16)
  1. BELANTAMAB MAFODOTIN [Suspect]
     Active Substance: BELANTAMAB MAFODOTIN
     Indication: Plasma cell myeloma
     Dosage: 140.00 MG, CYC, (2.5MG/KG)
     Route: 042
     Dates: start: 20210520, end: 20210701
  2. BELANTAMAB MAFODOTIN [Suspect]
     Active Substance: BELANTAMAB MAFODOTIN
     Dosage: 105 MG, CYC
     Route: 042
     Dates: start: 20210720, end: 20210812
  3. BELANTAMAB MAFODOTIN [Suspect]
     Active Substance: BELANTAMAB MAFODOTIN
     Dosage: 250 MG, CYC
     Route: 042
     Dates: start: 20210921, end: 20210921
  4. BELANTAMAB MAFODOTIN [Suspect]
     Active Substance: BELANTAMAB MAFODOTIN
     Dosage: 105 MG, CYC
     Route: 042
     Dates: start: 20211012
  5. BORTEZOMIB [Suspect]
     Active Substance: BORTEZOMIB
     Indication: Plasma cell myeloma
     Dosage: 2 MG, CYC (1.30 MG/M2)
     Route: 058
     Dates: start: 20210520
  6. DEXAMETHASONE [Suspect]
     Active Substance: DEXAMETHASONE
     Indication: Plasma cell myeloma
     Dosage: 20 MG, CYC
     Route: 042
     Dates: start: 20210520
  7. DEXAMETHASONE [Suspect]
     Active Substance: DEXAMETHASONE
     Indication: Plasma cell myeloma
     Dosage: 20 MG, CYC
     Route: 048
     Dates: start: 20210521, end: 20210708
  8. DEXAMETHASONE [Suspect]
     Active Substance: DEXAMETHASONE
     Dosage: 12 MG, CYC
     Route: 048
     Dates: start: 20210709, end: 20210816
  9. DEXAMETHASONE [Suspect]
     Active Substance: DEXAMETHASONE
     Dosage: 8 MG, CYC
     Route: 048
     Dates: start: 20210819
  10. IQYMUNE [Concomitant]
     Indication: Immunodeficiency
     Dosage: 25 MG, SINGLE
     Route: 042
     Dates: start: 20211102, end: 20211102
  11. IQYMUNE [Concomitant]
     Dosage: 25 MG, SINGLE
     Route: 042
     Dates: start: 20211104, end: 20211104
  12. PREDNISOLONE [Concomitant]
     Active Substance: PREDNISOLONE
     Indication: Steroid therapy
     Dosage: 30 MG, 1D
     Route: 048
     Dates: start: 20211102, end: 20211106
  13. IPRATROPIUM [Concomitant]
     Active Substance: IPRATROPIUM
     Indication: Bronchospasm
     Dosage: 500 MG, QID
     Route: 055
     Dates: start: 20211102, end: 20211107
  14. ALBUTEROL [Concomitant]
     Active Substance: ALBUTEROL
     Indication: Bronchospasm
     Dosage: 2.5 MG, QID
     Route: 055
     Dates: start: 20211102, end: 20211107
  15. ENOXAPARIN SODIUM [Concomitant]
     Active Substance: ENOXAPARIN SODIUM
     Indication: Thrombosis prophylaxis
     Dosage: 40 MG, 1D
     Route: 030
     Dates: start: 20211102, end: 20211107
  16. DOXYCYCLINE [Concomitant]
     Active Substance: DOXYCYCLINE
     Indication: Infection
     Dosage: 200 MG, BID
     Route: 048
     Dates: start: 20211102, end: 20211108

REACTIONS (1)
  - Metapneumovirus infection [Recovered/Resolved]

NARRATIVE: CASE EVENT DATE: 20211102
